FAERS Safety Report 6120242-7 (Version None)
Quarter: 2009Q1

REPORT INFORMATION
  Report Type: 
  Country: None (occurrence: None)
  Receive Date: 20090312
  Receipt Date: 20090226
  Transmission Date: 20090719
  Serious: Yes (Hospitalization, Disabling, Other)
  Sender: FDA-Public Use
  Company Number: 231347K09USA

PATIENT
  Age: 60 Year
  Sex: Male
  Weight: 104 kg

DRUGS (11)
  1. REBIF [Suspect]
     Indication: MULTIPLE SCLEROSIS
     Dosage: 44 MCG, 3 IN 1 WEEKS, SUBCUTANEOUS
     Route: 058
     Dates: start: 20000801
  2. COZAAR [Concomitant]
  3. CRESTOR [Concomitant]
  4. NEURONTIN [Concomitant]
  5. AMITRIPTYLINE HCL [Concomitant]
  6. CARBAMAZEPINE [Concomitant]
  7. CENTRUM (CENTRUM /00554501/) [Concomitant]
  8. IRON (IRON) [Concomitant]
  9. QUINAPRIL HCL [Concomitant]
  10. ZETIA [Concomitant]
  11. ASPIRIN [Concomitant]

REACTIONS (5)
  - ABDOMINAL PAIN [None]
  - CROHN'S DISEASE [None]
  - DIABETES MELLITUS [None]
  - FACE OEDEMA [None]
  - OEDEMA PERIPHERAL [None]
